FAERS Safety Report 20315650 (Version 1)
Quarter: 2022Q1

REPORT INFORMATION
  Report Type: Spontaneous
  Country: US (occurrence: None)
  Receive Date: 20220110
  Receipt Date: 20220110
  Transmission Date: 20220423
  Serious: No
  Sender: FDA-Public Use
  Company Number: US-ROCHE-2833302

PATIENT
  Age: 66 Year
  Sex: Male
  Weight: 90.346 kg

DRUGS (1)
  1. RITUXAN [Suspect]
     Active Substance: RITUXIMAB
     Indication: Non-Hodgkin^s lymphoma
     Dosage: YES
     Route: 042
     Dates: start: 201711

REACTIONS (3)
  - Lymphadenopathy [Not Recovered/Not Resolved]
  - Oropharyngeal pain [Recovering/Resolving]
  - Visual impairment [Not Recovered/Not Resolved]

NARRATIVE: CASE EVENT DATE: 20200901
